FAERS Safety Report 8510978-2 (Version None)
Quarter: 2012Q3

REPORT INFORMATION
  Report Type: 
  Country: None (occurrence: None)
  Receive Date: 20120703
  Receipt Date: 20120625
  Transmission Date: 20120928
  Serious: No
  Sender: FDA-Public Use
  Company Number: 2012MA007847

PATIENT
  Age: 68 Year
  Sex: Male

DRUGS (1)
  1. CARBIDOPRA AND LEVODPA TABLETS USP, 25 MG/250 MG (PUREPAC) (SINEMET) [Suspect]
     Indication: PARKINSON'S DISEASE
     Dosage: GT

REACTIONS (3)
  - OBSTRUCTION [None]
  - FEEDING TUBE COMPLICATION [None]
  - DEVICE LEAKAGE [None]
